FAERS Safety Report 11645406 (Version 3)
Quarter: 2019Q4

REPORT INFORMATION
  Report Type: Spontaneous
  Country: US (occurrence: US)
  Receive Date: 20151020
  Receipt Date: 20191024
  Transmission Date: 20200122
  Serious: Yes (Death, Other)
  Sender: FDA-Public Use
  Company Number: US-PFIZER INC-2015353681

PATIENT
  Age: 67 Year
  Sex: Male

DRUGS (8)
  1. MARINOL [Concomitant]
     Active Substance: DRONABINOL
     Dosage: 5 MG, UNK
     Dates: start: 20131008
  2. VIAGRA [Suspect]
     Active Substance: SILDENAFIL CITRATE
     Indication: HYPOGONADISM
     Dosage: UNK
     Route: 048
     Dates: start: 2005, end: 2013
  3. SIMVASTATIN. [Concomitant]
     Active Substance: SIMVASTATIN
     Indication: HYPERCHOLESTEROLAEMIA
     Dosage: 80 MG, UNK
     Dates: start: 20131008
  4. VIAGRA [Suspect]
     Active Substance: SILDENAFIL CITRATE
     Indication: ERECTILE DYSFUNCTION
     Dosage: UNK, AS DIRECTED
     Route: 048
     Dates: start: 200501, end: 2012
  5. HYDROCODONE [Concomitant]
     Active Substance: HYDROCODONE
     Dosage: 5 MG, UNK
     Dates: start: 20131008
  6. OXYCODONE [Concomitant]
     Active Substance: OXYCODONE
     Dosage: 5 MG, UNK
     Dates: start: 20131008
  7. LORAZEPAM. [Concomitant]
     Active Substance: LORAZEPAM
     Indication: DEPRESSION
     Dosage: 0.5 MG, UNK
     Dates: start: 20131008
  8. SIMCOR [Concomitant]
     Active Substance: NIACIN\SIMVASTATIN
     Dosage: 1000 MG, UNK
     Dates: start: 20131008

REACTIONS (4)
  - Cardiopulmonary failure [Fatal]
  - Metastatic malignant melanoma [Fatal]
  - Respiratory arrest [Unknown]
  - Cardiac arrest [Unknown]

NARRATIVE: CASE EVENT DATE: 20130923
